FAERS Safety Report 7059320-7 (Version None)
Quarter: 2010Q4

REPORT INFORMATION
  Report Type: 
  Country: None (occurrence: None)
  Receive Date: 20101025
  Receipt Date: 20101015
  Transmission Date: 20110411
  Serious: No
  Sender: FDA-Public Use
  Company Number: US-BIOGENIDEC-2010BI035887

PATIENT
  Age: 47 Year
  Sex: Male

DRUGS (2)
  1. AVONEX [Suspect]
     Indication: MULTIPLE SCLEROSIS
     Route: 030
     Dates: start: 20060914, end: 20080201
  2. AVONEX [Suspect]
     Route: 030
     Dates: start: 20080509

REACTIONS (4)
  - CENTRAL NERVOUS SYSTEM LESION [None]
  - DIZZINESS EXERTIONAL [None]
  - LOSS OF CONTROL OF LEGS [None]
  - VERTIGO [None]
